FAERS Safety Report 9672112 (Version 2)
Quarter: 2014Q1

REPORT INFORMATION
  Report Type: Spontaneous
  Country: IT (occurrence: IT)
  Receive Date: 20131106
  Receipt Date: 20140107
  Transmission Date: 20141002
  Serious: Yes (Other)
  Sender: FDA-Public Use
  Company Number: IT-JNJFOC-20131019813

PATIENT
  Sex: Female

DRUGS (1)
  1. ITRACONAZOLE [Suspect]
     Indication: VULVOVAGINAL CANDIDIASIS
     Route: 048

REACTIONS (5)
  - Vulvovaginal candidiasis [Unknown]
  - Candida infection [Unknown]
  - Abdominal discomfort [Unknown]
  - Nausea [Unknown]
  - Dysgeusia [Unknown]
